FAERS Safety Report 5497283-6 (Version None)
Quarter: 2007Q4

REPORT INFORMATION
  Report Type: 
  Country: None (occurrence: None)
  Receive Date: 20071025
  Receipt Date: 20061113
  Transmission Date: 20080405
  Serious: No
  Sender: FDA-Public Use
  Company Number: A0621288A

PATIENT
  Age: 59 Year
  Sex: Female

DRUGS (10)
  1. ADVAIR DISKUS 100/50 [Suspect]
     Indication: ASTHMA
     Route: 055
     Dates: start: 20040101
  2. RITALIN [Concomitant]
  3. VICODIN [Concomitant]
  4. ALBUTEROL [Concomitant]
  5. VITAMINS [Concomitant]
  6. FISH OIL CAPSULES [Concomitant]
  7. ASPIRIN [Concomitant]
  8. ALEVE [Concomitant]
  9. ALKA SELTZER PLUS COLD [Concomitant]
  10. TOPAMAX [Concomitant]

REACTIONS (2)
  - DRUG INEFFECTIVE [None]
  - PHARMACEUTICAL PRODUCT COMPLAINT [None]
